FAERS Safety Report 15958137 (Version 2)
Quarter: 2019Q2

REPORT INFORMATION
  Report Type: Not Available
  Country: US (occurrence: US)
  Receive Date: 20190213
  Receipt Date: 20190507
  Transmission Date: 20190711
  Serious: No
  Sender: FDA-Public Use
  Company Number: US-NEUROCRINE BIOSCIENCES INC.-2019NBI00338

PATIENT
  Age: 58 Year
  Sex: Male

DRUGS (2)
  1. INGREZZA [Suspect]
     Active Substance: VALBENAZINE
     Route: 048
     Dates: start: 20190124, end: 2019
  2. INGREZZA [Suspect]
     Active Substance: VALBENAZINE
     Indication: TARDIVE DYSKINESIA
     Route: 048
     Dates: start: 20190107, end: 201901

REACTIONS (4)
  - Depressed mood [Unknown]
  - Mania [Unknown]
  - Memory impairment [Unknown]
  - Feeling guilty [Unknown]

NARRATIVE: CASE EVENT DATE: 2019
